FAERS Safety Report 13422632 (Version 2)
Quarter: 2017Q2

REPORT INFORMATION
  Report Type: Spontaneous
  Country: JP (occurrence: JP)
  Receive Date: 20170410
  Receipt Date: 20170602
  Transmission Date: 20170830
  Serious: Yes (Hospitalization, Other)
  Sender: FDA-Public Use
  Company Number: JP-TEVA-2016-000420

PATIENT
  Age: 73 Year
  Sex: Female

DRUGS (3)
  1. ACTONEL [Suspect]
     Active Substance: RISEDRONATE SODIUM
     Indication: OSTEOPOROSIS
     Route: 048
  2. METHOTREXATE. [Concomitant]
     Active Substance: METHOTREXATE
     Indication: RHEUMATOID ARTHRITIS
     Route: 065
  3. PREDNISOLONE. [Concomitant]
     Active Substance: PREDNISOLONE
     Indication: RHEUMATOID ARTHRITIS
     Route: 065

REACTIONS (10)
  - Periodontal disease [Unknown]
  - Osteonecrosis of jaw [Recovered/Resolved]
  - Decreased appetite [Unknown]
  - Osteitis [Unknown]
  - Stomatitis [Unknown]
  - Purulent discharge [Unknown]
  - Cellulitis [Unknown]
  - Pain in jaw [Unknown]
  - Toothache [Unknown]
  - Gingival swelling [Unknown]

NARRATIVE: CASE EVENT DATE: 2015
